FAERS Safety Report 9331426 (Version 1)
Quarter: 2013Q2

REPORT INFORMATION
  Report Type: Spontaneous
  Country: IT (occurrence: IT)
  Receive Date: 20130605
  Receipt Date: 20130605
  Transmission Date: 20140414
  Serious: Yes (Other)
  Sender: FDA-Public Use
  Company Number: IT-GILEAD-2013-0075200

PATIENT
  Age: 75 Year
  Sex: Male

DRUGS (5)
  1. RANOLAZINE [Suspect]
     Indication: CORONARY ARTERY DISEASE
     Dosage: 375 MG, BID
     Route: 048
     Dates: start: 20130428, end: 20130501
  2. ATORVASTATINA [Interacting]
     Indication: CORONARY ARTERY DISEASE
     Dosage: 80 MG, QD
     Route: 048
     Dates: start: 20130428, end: 20130501
  3. IRBESARTAN [Concomitant]
     Dosage: UNK
     Dates: start: 20130428, end: 20130508
  4. PANTOPRAZOLO [Concomitant]
     Dosage: UNK
     Dates: start: 20130428, end: 20130508
  5. PLAVIX [Concomitant]
     Dosage: UNK
     Dates: start: 20130428, end: 20130508

REACTIONS (2)
  - Drug interaction [Recovered/Resolved]
  - Skin reaction [Recovered/Resolved]
